FAERS Safety Report 7218005-4 (Version None)
Quarter: 2011Q1

REPORT INFORMATION
  Report Type: 
  Country: None (occurrence: None)
  Receive Date: 20110110
  Receipt Date: 20040422
  Transmission Date: 20110831
  Serious: Yes (Death)
  Sender: FDA-Public Use
  Company Number: B0692772A

PATIENT

DRUGS (1)
  1. DILATREND [Suspect]
     Route: 065

REACTIONS (3)
  - FALL [None]
  - HIP FRACTURE [None]
  - UPPER LIMB FRACTURE [None]
